FAERS Safety Report 5385556-7 (Version None)
Quarter: 2007Q3

REPORT INFORMATION
  Report Type: 
  Country: None (occurrence: None)
  Receive Date: 20070712
  Receipt Date: 20070702
  Transmission Date: 20080115
  Serious: Yes (Hospitalization)
  Sender: FDA-Public Use
  Company Number: B0478341A

PATIENT
  Age: 80 Year
  Sex: Female

DRUGS (4)
  1. ARIXTRA [Suspect]
     Indication: DRUG USE FOR UNKNOWN INDICATION
     Dosage: 7.5MG PER DAY
     Route: 058
     Dates: start: 20070322, end: 20070325
  2. PREVISCAN [Concomitant]
     Indication: DRUG USE FOR UNKNOWN INDICATION
     Dosage: 20MG PER DAY
     Route: 048
     Dates: start: 20070325, end: 20070326
  3. FORADIL [Concomitant]
     Indication: ASTHMA
     Route: 055
  4. EURELIX [Concomitant]
     Indication: ESSENTIAL HYPERTENSION
     Route: 048

REACTIONS (7)
  - CEREBROVASCULAR ACCIDENT [None]
  - CONFUSIONAL STATE [None]
  - DYSPHASIA [None]
  - HEMIPARESIS [None]
  - INJECTION SITE OEDEMA [None]
  - MOTOR DYSFUNCTION [None]
  - SUBDURAL HAEMATOMA [None]
